FAERS Safety Report 22198787 (Version 4)
Quarter: 2023Q2

REPORT INFORMATION
  Report Type: Report from Study
  Country: US (occurrence: US)
  Receive Date: 20230411
  Receipt Date: 20230623
  Transmission Date: 20230722
  Serious: Yes (Other)
  Sender: FDA-Public Use
  Company Number: US-XERIS PHARMACEUTICALS-2023XER00088

PATIENT
  Age: 65 Year
  Sex: Female

DRUGS (2)
  1. RECORLEV [Suspect]
     Active Substance: LEVOKETOCONAZOLE
     Indication: Pituitary-dependent Cushing^s syndrome
     Dosage: ONE TABLET (150 MG), 2X/DAY
     Route: 048
     Dates: start: 20230316, end: 202305
  2. RECORLEV [Suspect]
     Active Substance: LEVOKETOCONAZOLE
     Dosage: ONE TABLET (150 MG), 2X/DAY
     Route: 048
     Dates: start: 202305

REACTIONS (6)
  - Nausea [Unknown]
  - Fatigue [Not Recovered/Not Resolved]
  - Blood potassium increased [Unknown]
  - Gastroenteritis viral [Unknown]
  - Cognitive disorder [Unknown]
  - Muscle spasms [Unknown]

NARRATIVE: CASE EVENT DATE: 20230501
